FAERS Safety Report 9141896 (Version 2)
Quarter: 2013Q2

REPORT INFORMATION
  Report Type: Spontaneous
  Country: US (occurrence: US)
  Receive Date: 20130305
  Receipt Date: 20130404
  Transmission Date: 20140414
  Serious: No
  Sender: FDA-Public Use
  Company Number: US-AMGEN-USASP2013011224

PATIENT
  Age: 63 Year
  Sex: Female
  Weight: 118.82 kg

DRUGS (12)
  1. ENBREL [Suspect]
     Indication: PSORIATIC ARTHROPATHY
     Dosage: 50 MG, QWK
     Route: 058
     Dates: start: 20120604, end: 20130204
  2. ENBREL [Suspect]
     Indication: PSORIASIS
  3. ENBREL [Suspect]
     Indication: RHEUMATOID ARTHRITIS
  4. HUMIRA [Concomitant]
     Dosage: 40 MG/0.8ML EVERY TWO WEEKS
     Route: 058
  5. CYMBALTA [Concomitant]
     Indication: FIBROMYALGIA
     Dosage: 30 MG, QD
     Route: 048
  6. TRIAMTERENE/HCTZ [Concomitant]
     Dosage: 37.5MG - 25MG EVERY DAY
     Route: 048
  7. TRAMADOL HCL [Concomitant]
     Dosage: 1 TABLET (50MG) EVERY 12 HOURS AS NEEDED
     Route: 048
  8. NADOLOL [Concomitant]
     Dosage: 1 TABLET (40MG) EVERY DAY
     Route: 048
  9. KLOR CON [Concomitant]
     Dosage: 8 MEQ, QD, WITH FOOD
     Route: 048
  10. DEXILANT [Concomitant]
     Dosage: 1 CAPSULE (60MG) EVERY DAY
     Route: 048
  11. COSOPT [Concomitant]
     Dosage: 2%-0.5%, 1 DROP 2 TIMES EVERY DAY
     Route: 047
  12. AMLODIPINE BESYLATE [Concomitant]
     Dosage: 1 TABLET (10MG), EVERY DAY
     Route: 048

REACTIONS (6)
  - Joint stiffness [Not Recovered/Not Resolved]
  - Mobility decreased [Not Recovered/Not Resolved]
  - Therapeutic response decreased [Recovering/Resolving]
  - Psoriatic arthropathy [Unknown]
  - Fibromyalgia [Unknown]
  - Osteoarthritis [Unknown]
